FAERS Safety Report 4319179-5 (Version None)
Quarter: 2004Q1

REPORT INFORMATION
  Report Type: 
  Country: None (occurrence: None)
  Receive Date: 20040316
  Receipt Date: 20040309
  Transmission Date: 20041129
  Serious: Yes (Death)
  Sender: FDA-Public Use
  Company Number: EWC040137570

PATIENT
  Age: 59 Year
  Sex: Female
  Weight: 46 kg

DRUGS (3)
  1. GEMCITABINE HYDROCHLORIDE-IV (GEMCITABINE) [Suspect]
     Indication: PANCREATIC CARCINOMA
     Dosage: 1300 MG
     Dates: start: 20020927
  2. FURTULON (DOXIFLURIDINE) [Concomitant]
  3. CISPLATIN [Concomitant]

REACTIONS (4)
  - FEBRILE NEUTROPENIA [None]
  - PNEUMONIA [None]
  - SEPSIS [None]
  - THROMBOCYTOPENIA [None]
